FAERS Safety Report 8575028 (Version 3)
Quarter: 2013Q3

REPORT INFORMATION
  Report Type: Spontaneous
  Country: US (occurrence: US)
  Receive Date: 20120523
  Receipt Date: 20130712
  Transmission Date: 20140515
  Serious: Yes (Other)
  Sender: FDA-Public Use
  Company Number: US-PFIZER INC-2012122421

PATIENT
  Age: 43 Year
  Sex: Female
  Weight: 80.7 kg

DRUGS (9)
  1. LYRICA [Suspect]
     Indication: FIBROMYALGIA
     Dosage: 75 MG, 2X/DAY
     Route: 048
  2. SEROQUEL [Suspect]
     Indication: NIGHTMARE
     Dosage: UNK
  3. SEROQUEL [Suspect]
     Indication: SUICIDAL IDEATION
  4. PRISTIQ [Concomitant]
     Indication: DEPRESSION
     Dosage: 100 MG, 1X/DAY
     Route: 048
  5. SOMA [Concomitant]
     Indication: TREMOR
     Dosage: 350 MG, 2X/DAY
  6. SOMA [Concomitant]
     Indication: FIBROMYALGIA
  7. HYDROCODONE [Concomitant]
     Indication: FIBROMYALGIA
     Dosage: 10/325 MG, AS NEEDED
  8. PRAVACHOL [Concomitant]
     Indication: BLOOD CHOLESTEROL INCREASED
     Dosage: 40 MG, 1X/DAY
  9. KLONOPIN [Concomitant]
     Indication: ANXIETY
     Dosage: 1 MG, AS NEEDED

REACTIONS (13)
  - Bipolar disorder [Unknown]
  - Amnesia [Unknown]
  - Post-traumatic stress disorder [Unknown]
  - Suicidal ideation [Unknown]
  - Fibromyalgia [Unknown]
  - Thinking abnormal [Unknown]
  - Mental disorder [Unknown]
  - Depressed mood [Unknown]
  - Drug ineffective [Unknown]
  - Vision blurred [Not Recovered/Not Resolved]
  - Feeling abnormal [Unknown]
  - Activities of daily living impaired [Unknown]
  - Insomnia [Unknown]
